FAERS Safety Report 8459283-3 (Version None)
Quarter: 2012Q2

REPORT INFORMATION
  Report Type: 
  Country: None (occurrence: None)
  Receive Date: 20120622
  Receipt Date: 20120619
  Transmission Date: 20120825
  Serious: Yes (Death)
  Sender: FDA-Public Use
  Company Number: US-SANOFI-AVENTIS-2012SA044531

PATIENT
  Sex: Female

DRUGS (2)
  1. CAPECITABINE [Suspect]
     Indication: BREAST CANCER
     Dosage: RECEIVED ON DAYS 1 TO 14 EVERY 3 WEEKS
     Route: 048
  2. DOCETAXEL [Suspect]
     Indication: BREAST CANCER
     Dosage: ON DAY 1
     Route: 042

REACTIONS (1)
  - DEATH [None]
